FAERS Safety Report 10029370 (Version 2)
Quarter: 2014Q4

REPORT INFORMATION
  Report Type: Report from Study
  Country: MX (occurrence: MX)
  Receive Date: 20140322
  Receipt Date: 20141023
  Transmission Date: 20150528
  Serious: Yes (Death, Hospitalization, Other)
  Sender: FDA-Public Use
  Company Number: PHHY2014MX033893

PATIENT
  Age: 90 Year
  Sex: Female

DRUGS (2)
  1. EXELON PATCH [Suspect]
     Active Substance: RIVASTIGMINE
     Indication: DEMENTIA ALZHEIMER^S TYPE
     Dosage: 9.5 MG, QD (10CM2)
     Route: 062
     Dates: start: 201311, end: 201401
  2. EXELON PATCH [Suspect]
     Active Substance: RIVASTIGMINE
     Indication: DEMENTIA
     Dosage: 9.5 MG, QD (10CM2)

REACTIONS (12)
  - Senile dementia [Not Recovered/Not Resolved]
  - Sleep disorder [Unknown]
  - Lung disorder [Fatal]
  - Pneumonia [Fatal]
  - Abasia [Not Recovered/Not Resolved]
  - Myocardial infarction [Fatal]
  - Contusion [Not Recovered/Not Resolved]
  - Peripheral swelling [Not Recovered/Not Resolved]
  - Haematemesis [Not Recovered/Not Resolved]
  - Gastritis [Unknown]
  - Hernia [Not Recovered/Not Resolved]
  - Loss of consciousness [Fatal]

NARRATIVE: CASE EVENT DATE: 201312
